FAERS Safety Report 9614708 (Version 1)
Quarter: 2013Q4

REPORT INFORMATION
  Report Type: Spontaneous
  Country: ES (occurrence: ES)
  Receive Date: 20131011
  Receipt Date: 20131011
  Transmission Date: 20140711
  Serious: Yes (Other)
  Sender: FDA-Public Use
  Company Number: ES-ASTELLAS-2013EU008408

PATIENT
  Age: 65 Year
  Sex: Male

DRUGS (3)
  1. VESICARE [Suspect]
     Dosage: UNK
     Route: 048
  2. DISGREN                            /00675901/ [Concomitant]
     Indication: ANTIPLATELET THERAPY
     Dosage: UNK
     Route: 065
  3. PLETAL [Concomitant]
     Indication: INTERMITTENT CLAUDICATION
     Dosage: UNK
     Route: 065

REACTIONS (1)
  - Ejaculation delayed [Unknown]
